FAERS Safety Report 23413781 (Version 1)
Quarter: 2024Q1

REPORT INFORMATION
  Report Type: Spontaneous
  Country: US (occurrence: US)
  Receive Date: 20240117
  Receipt Date: 20240117
  Transmission Date: 20240409
  Serious: No
  Sender: FDA-Public Use
  Company Number: US-NOVOPROD-1117514

PATIENT
  Age: 56 Year
  Sex: Female

DRUGS (1)
  1. OZEMPIC [Suspect]
     Active Substance: SEMAGLUTIDE
     Indication: Type 2 diabetes mellitus
     Dosage: 0.5 DOSE QW
     Route: 058
     Dates: start: 20230731

REACTIONS (3)
  - Dyskinesia [Not Recovered/Not Resolved]
  - Dizziness postural [Unknown]
  - Fall [Unknown]

NARRATIVE: CASE EVENT DATE: 20230815
